FAERS Safety Report 9638556 (Version 2)
Quarter: 2014Q1

REPORT INFORMATION
  Report Type: Spontaneous
  Country: US (occurrence: US)
  Receive Date: 20131022
  Receipt Date: 20140226
  Transmission Date: 20141002
  Serious: Yes (Death)
  Sender: FDA-Public Use
  Company Number: US-B.I. PHARMACEUTICALS,INC./RIDGEFIELD-2013-BI-33685BP

PATIENT
  Age: 89 Year
  Sex: Female
  Weight: 56.7 kg

DRUGS (11)
  1. PRADAXA [Suspect]
     Indication: ATRIAL FIBRILLATION
     Dosage: 300 MG
     Route: 065
     Dates: start: 20111214, end: 20111214
  2. ASPIRIN [Concomitant]
     Dosage: 325 MG
     Route: 048
  3. LEVOTHYROXINE [Concomitant]
     Indication: HYPOTHYROIDISM
     Dosage: 0.1 MG
     Route: 048
  4. LISINOPRIL [Concomitant]
     Dosage: 5 MG
     Route: 065
  5. FAMOTIDINE [Concomitant]
     Dosage: 20 MG
     Route: 065
  6. DILTIAZEM [Concomitant]
     Route: 065
  7. AZITHROMYCIN [Concomitant]
     Indication: PNEUMONIA
     Route: 065
  8. AMIODARONE [Concomitant]
     Route: 065
  9. ATACAND [Concomitant]
     Dosage: 16 MG
     Route: 048
  10. SIMVASTATIN [Concomitant]
     Dosage: 20 MG
     Route: 048
  11. LOVENOX [Concomitant]
     Indication: THROMBOSIS PROPHYLAXIS
     Route: 065
     Dates: start: 20111214, end: 20111215

REACTIONS (2)
  - Cerebral haemorrhage [Fatal]
  - Ischaemic stroke [Fatal]
